FAERS Safety Report 7122267-1 (Version None)
Quarter: 2010Q4

REPORT INFORMATION
  Report Type: 
  Country: None (occurrence: None)
  Receive Date: 20101124
  Receipt Date: 20101116
  Transmission Date: 20110411
  Serious: Yes (Other)
  Sender: FDA-Public Use
  Company Number: US-CELGENEUS-163-21880-10101973

PATIENT
  Sex: Female
  Weight: 81.266 kg

DRUGS (8)
  1. REVLIMID [Suspect]
     Indication: MULTIPLE MYELOMA
     Route: 048
     Dates: start: 20100701
  2. REVLIMID [Suspect]
     Route: 048
  3. REVLIMID [Suspect]
     Route: 048
     Dates: start: 20100101
  4. VITAMIN D [Concomitant]
     Route: 065
  5. NEXIUM [Concomitant]
     Route: 065
  6. ADVIL [Concomitant]
     Route: 065
  7. BENICAR [Concomitant]
     Route: 065
  8. ASA [Concomitant]
     Route: 065

REACTIONS (1)
  - CATARACT [None]
